FAERS Safety Report 4974029-9 (Version None)
Quarter: 2006Q2

REPORT INFORMATION
  Report Type: 
  Country: None (occurrence: None)
  Receive Date: 20060410
  Receipt Date: 20060401
  Transmission Date: 20061013
  Serious: Yes (Other)
  Sender: FDA-Public Use
  Company Number: 2006016606

PATIENT
  Sex: Female
  Weight: 63.5036 kg

DRUGS (12)
  1. NORVASC [Suspect]
     Indication: HYPERTENSION
     Dosage: 2.5 MG (2.5 MG, PRN), ORAL
     Route: 048
     Dates: end: 20050101
  2. NORVASC [Suspect]
     Indication: HYPERTENSION
     Dosage: 2.5 MG (2.5 MG, PRN), ORAL
     Route: 048
     Dates: start: 20050101
  3. LIPITOR [Suspect]
     Indication: BLOOD CHOLESTEROL INCREASED
     Dates: start: 20050101
  4. HYZAAR (HYDROCHLOROTHIAZIDE, LOSARTIN POTASSIUM) [Concomitant]
  5. ALLEGRA [Concomitant]
  6. SINGULAIR ^MED^ (MONTELUKAST SODIUM) [Concomitant]
  7. FLOVENT [Concomitant]
  8. BECONASE (BECLOMETASONE DIPROPIONATE) [Concomitant]
  9. RHINOCORT [Concomitant]
  10. COMBIVENT [Concomitant]
  11. ADVAIR DISKUS 100/50 [Concomitant]
  12. SEREVENT [Concomitant]

REACTIONS (6)
  - ACCIDENT AT WORK [None]
  - ASTHMA [None]
  - BLOOD CHOLESTEROL INCREASED [None]
  - DRUG INEFFECTIVE [None]
  - PROCEDURAL PAIN [None]
  - SPINAL FUSION SURGERY [None]
